FAERS Safety Report 15116896 (Version 2)
Quarter: 2019Q2

REPORT INFORMATION
  Report Type: Report from Study
  Country: GB (occurrence: GB)
  Receive Date: 20180706
  Receipt Date: 20190514
  Transmission Date: 20190711
  Serious: Yes (Hospitalization)
  Sender: FDA-Public Use
  Company Number: GB-SA-2016SA137679

PATIENT
  Age: 37 Year
  Sex: Female
  Weight: 72.56 kg

DRUGS (4)
  1. ALEMTUZUMAB [Suspect]
     Active Substance: ALEMTUZUMAB
     Dosage: 12 MG,QD
     Route: 041
     Dates: start: 20150801, end: 20150803
  2. ALEMTUZUMAB [Suspect]
     Active Substance: ALEMTUZUMAB
     Indication: MULTIPLE SCLEROSIS
     Dosage: 12 MG,QD
     Route: 041
     Dates: start: 20140801, end: 20140805
  3. VITAMINS NOS [Concomitant]
     Active Substance: VITAMINS
     Dosage: 1/ DAY
     Route: 048
     Dates: start: 20170201, end: 20180101
  4. VITAMIN D [COLECALCIFEROL] [Concomitant]
     Active Substance: CHOLECALCIFEROL
     Dosage: 5000 IU
     Route: 048

REACTIONS (10)
  - Fatigue [Unknown]
  - Drug exposure before pregnancy [Unknown]
  - Rash vesicular [Recovered/Resolved]
  - Rash generalised [Recovered/Resolved]
  - Hypothyroidism [Not Recovered/Not Resolved]
  - Product use issue [Unknown]
  - Memory impairment [Not Recovered/Not Resolved]
  - Livedo reticularis [Unknown]
  - Weight increased [Unknown]
  - Blister [Recovered/Resolved]

NARRATIVE: CASE EVENT DATE: 201408
